FAERS Safety Report 11737980 (Version 1)
Quarter: 2015Q4

REPORT INFORMATION
  Report Type: Spontaneous
  Country: US (occurrence: US)
  Receive Date: 20151110
  Receipt Date: 20151110
  Transmission Date: 20160304
  Serious: No
  Sender: FDA-Public Use
  Company Number: US-ELI_LILLY_AND_COMPANY-US201207006060

PATIENT
  Age: 40 Year
  Sex: Female

DRUGS (3)
  1. VITAMIN D [Concomitant]
     Active Substance: CHOLECALCIFEROL
  2. FORTEO [Suspect]
     Active Substance: TERIPARATIDE
     Indication: OSTEOPOROSIS
     Dosage: 20 UG, QD
     Dates: start: 20120702
  3. CALCIUM [Concomitant]
     Active Substance: CALCIUM
     Dosage: 600 MG, UNK

REACTIONS (10)
  - Dizziness [Unknown]
  - Ageusia [Unknown]
  - Vomiting [Unknown]
  - Dysgeusia [Unknown]
  - Diarrhoea [Unknown]
  - Heart rate increased [Unknown]
  - Feeling jittery [Unknown]
  - Asthenia [Unknown]
  - Nausea [Recovering/Resolving]
  - Skin discomfort [Unknown]

NARRATIVE: CASE EVENT DATE: 201207
